FAERS Safety Report 11293845 (Version 2)
Quarter: 2015Q3

REPORT INFORMATION
  Report Type: Report from Study
  Country: DE (occurrence: DE)
  Receive Date: 20150722
  Receipt Date: 20150723
  Transmission Date: 20151125
  Serious: Yes (Other)
  Sender: FDA-Public Use
  Company Number: DE-ABBVIE-15P-062-1430553-00

PATIENT
  Age: 77 Year
  Sex: Male

DRUGS (1)
  1. DUODOPA [Suspect]
     Active Substance: CARBIDOPA\LEVODOPA
     Indication: PARKINSON^S DISEASE
     Dosage: 2.6 ML/H
     Route: 050

REACTIONS (13)
  - Drug ineffective [Not Recovered/Not Resolved]
  - Skin disorder [Recovering/Resolving]
  - Cerebrovascular accident [Unknown]
  - Constipation [Unknown]
  - Visual impairment [Unknown]
  - Blood pressure decreased [Not Recovered/Not Resolved]
  - Eye irritation [Unknown]
  - Dizziness [Unknown]
  - Hypotension [Unknown]
  - Device occlusion [Unknown]
  - Eye irritation [Unknown]
  - Eschar [Unknown]
  - Dizziness [Unknown]

NARRATIVE: CASE EVENT DATE: 201501
